FAERS Safety Report 19382857 (Version 12)
Quarter: 2024Q4

REPORT INFORMATION
  Report Type: Report from Study
  Country: US (occurrence: US)
  Receive Date: 20210607
  Receipt Date: 20241214
  Transmission Date: 20250115
  Serious: Yes (Hospitalization, Other)
  Sender: TAKEDA
  Company Number: US-TAKEDA-US202016259

PATIENT
  Sex: Female

DRUGS (2)
  1. HUMAN IMMUNOGLOBULIN G [Suspect]
     Active Substance: HUMAN IMMUNOGLOBULIN G
     Indication: Immunodeficiency common variable
     Dosage: 30 GRAM, Q3WEEKS
  2. HUMAN IMMUNOGLOBULIN G [Suspect]
     Active Substance: HUMAN IMMUNOGLOBULIN G
     Indication: Primary immunodeficiency syndrome
     Dosage: UNK

REACTIONS (27)
  - Cataract [Unknown]
  - Cardiac disorder [Unknown]
  - Lung disorder [Unknown]
  - Loss of consciousness [Unknown]
  - Haemorrhage [Recovered/Resolved]
  - Cardiac failure [Unknown]
  - Contusion [Recovered/Resolved]
  - Migraine [Unknown]
  - Fall [Unknown]
  - Hand fracture [Unknown]
  - Face injury [Unknown]
  - Multiple allergies [Unknown]
  - Impaired healing [Not Recovered/Not Resolved]
  - Skin ulcer [Not Recovered/Not Resolved]
  - Gout [Unknown]
  - Gait disturbance [Unknown]
  - Fear of falling [Unknown]
  - Depression [Unknown]
  - Illness [Unknown]
  - Cough [Unknown]
  - Malaise [Unknown]
  - Vomiting [Recovered/Resolved]
  - Back pain [Unknown]
  - Tremor [Unknown]
  - Fatigue [Recovered/Resolved]
  - Diarrhoea [Recovered/Resolved]
  - Dizziness [Unknown]
